FAERS Safety Report 16529356 (Version 7)
Quarter: 2020Q4

REPORT INFORMATION
  Report Type: Spontaneous
  Country: US (occurrence: US)
  Receive Date: 20190704
  Receipt Date: 20201026
  Transmission Date: 20210113
  Serious: No
  Sender: FDA-Public Use
  Company Number: PHEH2019US028065

PATIENT
  Sex: Female

DRUGS (2)
  1. TYKERB [Suspect]
     Active Substance: LAPATINIB DITOSYLATE
     Dosage: 1250 MG, QD
     Route: 048
     Dates: start: 20201005
  2. TYKERB [Suspect]
     Active Substance: LAPATINIB DITOSYLATE
     Indication: BREAST CANCER
     Dosage: 1250 MG, QD
     Route: 048
     Dates: start: 20190626

REACTIONS (12)
  - Musculoskeletal stiffness [Unknown]
  - Rhinorrhoea [Unknown]
  - Diarrhoea [Unknown]
  - Oedema peripheral [Unknown]
  - Nasopharyngitis [Unknown]
  - Oral pain [Unknown]
  - Lip swelling [Unknown]
  - Epistaxis [Unknown]
  - Seasonal allergy [Unknown]
  - Lip blister [Unknown]
  - Headache [Unknown]
  - Pruritus [Unknown]
